FAERS Safety Report 18533380 (Version 4)
Quarter: 2020Q4

REPORT INFORMATION
  Report Type: Report from Study
  Country: US (occurrence: US)
  Receive Date: 20201123
  Receipt Date: 20201222
  Transmission Date: 20210114
  Serious: Yes (Hospitalization, Other)
  Sender: FDA-Public Use
  Company Number: US-HORIZON-2020HZN00798

PATIENT
  Age: 60 Year
  Sex: Female

DRUGS (21)
  1. MIRALAX [Concomitant]
     Active Substance: POLYETHYLENE GLYCOL 3350
     Dosage: 17 GM CAPFUL MIXED IN 4-8 OZ OF LIQUID DAILY
  2. PREDNISONE. [Concomitant]
     Active Substance: PREDNISONE
     Dosage: 8 X 1MG TABLETS BY MOUTH DAILY
  3. ZINC. [Concomitant]
     Active Substance: ZINC
     Dosage: 1 X 220 MG CAPSULE BY MOUTH DAILY
     Route: 050
  4. ZANAFLEX [Concomitant]
     Active Substance: TIZANIDINE HYDROCHLORIDE
     Dosage: ONE 2MG TABLET BY MOUTH EVERY 6 HOURS AS NEEDED
  5. RESTORIL [Concomitant]
     Active Substance: TEMAZEPAM
     Dosage: ONE CAPSULE BY MOUTH AT BEDTIME AS NEEDED
  6. MULTIVITAMIN [Concomitant]
     Active Substance: VITAMINS
     Dosage: 1 TABLET DAILY
  7. VITAMIN C [Concomitant]
     Active Substance: ASCORBIC ACID
     Dosage: ONE 500 MG TABLET BY MOUTH ONCE DAILY
  8. FLECAINADE [Concomitant]
     Dosage: 1 X 100 MG TABLET BY MOUTH TWICE DAILY
  9. LOPRESSOR [Concomitant]
     Active Substance: METOPROLOL TARTRATE
     Dosage: 25MG BY MOUTH TWICE DAILY
  10. OMEPRAZOLE. [Concomitant]
     Active Substance: OMEPRAZOLE
     Dosage: ONE 40 MG CAPSULE BY MOUTH TWICE DAILY
  11. VITAMIN D3 [Concomitant]
     Active Substance: CHOLECALCIFEROL
     Dosage: 1000 UNITS BY MOUTH DAILY
  12. GABAPENTIN. [Concomitant]
     Active Substance: GABAPENTIN
     Dosage: ONE CAPSULE BY MOUTH 3 TIMES DAILY
  13. FLOMAX [Concomitant]
     Active Substance: TAMSULOSIN HYDROCHLORIDE
     Dosage: 1 0.4 MG CAPSULE DAILY
     Route: 050
  14. LISINOPRIL. [Concomitant]
     Active Substance: LISINOPRIL
     Dosage: 1 10MG TABLET BY MOUTH TWICE DAILY
  15. OXYCONTIN [Concomitant]
     Active Substance: OXYCODONE HYDROCHLORIDE
     Dosage: 20MG - 1 TABLET BY MOUTH TWICE DAILY
  16. PERCOCET [Concomitant]
     Active Substance: ACETAMINOPHEN\OXYCODONE HYDROCHLORIDE
     Dosage: 7.5 MG BY MOUTH EVERY 4 HOURS
  17. LEVOTHYROXINE. [Concomitant]
     Active Substance: LEVOTHYROXINE
     Dosage: 100 MCG BY MOUTH DAILY IN MORNING
  18. BETHANECOL [Concomitant]
     Dosage: 25MG BY MOUTH 3 TIMES DAILY
  19. TEPEZZA [Suspect]
     Active Substance: TEPROTUMUMAB-TRBW
     Indication: ENDOCRINE OPHTHALMOPATHY
     Dosage: Q 3 WEEKS
     Route: 050
     Dates: start: 202007
  20. HYDROXYCHLOROQUINE [Concomitant]
     Active Substance: HYDROXYCHLOROQUINE
     Dosage: 200 MG ONCE DAILY
  21. ACIDOPHILUS [Concomitant]
     Active Substance: LACTOBACILLUS ACIDOPHILUS
     Dosage: ONE CAPSULE BY MOUTH DAILY

REACTIONS (7)
  - Large intestinal ulcer [Recovered/Resolved]
  - Gastrointestinal obstruction [Recovered/Resolved]
  - Gastrointestinal obstruction [Recovered/Resolved]
  - Gastrointestinal necrosis [Recovered/Resolved]
  - Condition aggravated [Recovered/Resolved]
  - Colitis ulcerative [Unknown]
  - Vomiting [Recovered/Resolved]

NARRATIVE: CASE EVENT DATE: 20201018
